FAERS Safety Report 9154229 (Version 1)
Quarter: 2013Q1

REPORT INFORMATION
  Report Type: Spontaneous
  Country: DE (occurrence: None)
  Receive Date: 20130207
  Receipt Date: 20130207
  Transmission Date: 20140127
  Serious: Yes (Hospitalization)
  Sender: FDA-Public Use
  Company Number: ACO_34055_2013

PATIENT
  Age: 42 Year
  Sex: Female

DRUGS (3)
  1. FAMPYRA (DALFAMPRIDINE) TABLET, 10MG [Suspect]
     Indication: MULTIPLE SCLEROSIS
     Route: 048
     Dates: start: 201211
  2. IBUPROFEN (IBUPROFEN) [Concomitant]
  3. AVONEX (INTERFERON BETA-1A) [Suspect]

REACTIONS (3)
  - Panic attack [None]
  - Dizziness [None]
  - Tremor [None]
